FAERS Safety Report 22033396 (Version 3)
Quarter: 2023Q1

REPORT INFORMATION
  Report Type: Spontaneous
  Country: FR (occurrence: None)
  Receive Date: 20230224
  Receipt Date: 20230314
  Transmission Date: 20230418
  Serious: Yes (Other)
  Sender: FDA-Public Use
  Company Number: FR-Merck Healthcare KGaA-9384753

PATIENT
  Age: 51 Year
  Sex: Female

DRUGS (1)
  1. LEVOTHYROXINE [Suspect]
     Active Substance: LEVOTHYROXINE
     Indication: Product used for unknown indication
     Dosage: AT AN ALTERNATED DOSE OF 75 UG AND 100 UG ONCE DAILY
     Dates: start: 2017, end: 2017

REACTIONS (15)
  - Suicide attempt [Recovered/Resolved]
  - Swelling [Recovered/Resolved]
  - Embolism [Recovered/Resolved with Sequelae]
  - Haemorrhage [Recovered/Resolved]
  - Nervous system disorder [Unknown]
  - Oedema [Recovered/Resolved]
  - Hallucination [Recovered/Resolved]
  - Suicidal ideation [Recovered/Resolved]
  - Postmenopausal haemorrhage [Recovered/Resolved]
  - Menstruation irregular [Recovered/Resolved]
  - Gastrointestinal disorder [Recovered/Resolved]
  - Delusion [Recovered/Resolved]
  - Peripheral swelling [Recovered/Resolved]
  - Swelling face [Recovered/Resolved]
  - Temperature intolerance [Recovered/Resolved]

NARRATIVE: CASE EVENT DATE: 20170101
